FAERS Safety Report 22203797 (Version 1)
Quarter: 2023Q2

REPORT INFORMATION
  Report Type: Spontaneous
  Country: US (occurrence: US)
  Receive Date: 20230412
  Receipt Date: 20230412
  Transmission Date: 20230722
  Serious: No
  Sender: FDA-Public Use
  Company Number: US-JNJFOC-20200325555

PATIENT
  Sex: Female
  Weight: 92.616 kg

DRUGS (1)
  1. IMODIUM [Suspect]
     Active Substance: LOPERAMIDE HYDROCHLORIDE
     Indication: Bacterial infection
     Dosage: HALF OF A TABLET DAILY
     Route: 048
     Dates: end: 20200312

REACTIONS (1)
  - Incorrect dose administered [Unknown]
